FAERS Safety Report 7530000-4 (Version None)
Quarter: 2011Q2

REPORT INFORMATION
  Report Type: 
  Country: None (occurrence: None)
  Receive Date: 20110607
  Receipt Date: 20110606
  Transmission Date: 20111010
  Serious: Yes (Life-Threatening, Hospitalization)
  Sender: FDA-Public Use
  Company Number: GB-AMGEN-GBRSP2010004401

PATIENT
  Age: 40 Year
  Sex: Male

DRUGS (6)
  1. ARANESP [Suspect]
     Indication: RENAL FAILURE CHRONIC
     Dosage: 80 A?G, QWK
     Route: 058
     Dates: start: 20100208, end: 20101108
  2. CREON [Concomitant]
     Indication: MALABSORPTION
     Dosage: UNK
     Dates: start: 20090506
  3. ATORVASTATIN [Concomitant]
     Indication: HYPERCHOLESTEROLAEMIA
     Dosage: 20 MG, QD
     Route: 048
     Dates: start: 20100824
  4. TACROLIMUS [Concomitant]
     Indication: IMMUNOSUPPRESSION
     Dosage: 5 MG, BID
     Route: 048
     Dates: start: 20100429
  5. ESOMEPRAZOLE MAGNESIUM [Concomitant]
     Indication: DYSPEPSIA
     Dosage: 40 MG, QD
     Route: 048
     Dates: start: 20100630
  6. MYCOPHENOLIC ACID [Concomitant]
     Indication: IMMUNOSUPPRESSION
     Dosage: 500 MG, BID
     Dates: start: 20090707, end: 20101108

REACTIONS (2)
  - APLASIA PURE RED CELL [None]
  - ANAEMIA [None]
